FAERS Safety Report 17706185 (Version 1)
Quarter: 2020Q2

REPORT INFORMATION
  Report Type: Spontaneous
  Country: CA (occurrence: CA)
  Receive Date: 20200424
  Receipt Date: 20200424
  Transmission Date: 20200714
  Serious: Yes (Other)
  Sender: FDA-Public Use
  Company Number: CA-SAMSUNG BIOEPIS-SB-2020-13625

PATIENT
  Age: 42 Year
  Sex: Female
  Weight: 91 kg

DRUGS (1)
  1. INFLIXIMAB [Suspect]
     Active Substance: INFLIXIMAB
     Indication: COLITIS ULCERATIVE
     Route: 042

REACTIONS (7)
  - Chest discomfort [Unknown]
  - Tachycardia [Unknown]
  - Dyspnoea [Unknown]
  - Underdose [Unknown]
  - Infusion related reaction [Unknown]
  - Hyperhidrosis [Unknown]
  - Throat tightness [Unknown]
